FAERS Safety Report 7682405-9 (Version None)
Quarter: 2011Q3

REPORT INFORMATION
  Report Type: 
  Country: None (occurrence: None)
  Receive Date: 20110815
  Receipt Date: 20110810
  Transmission Date: 20111222
  Serious: Yes (Death)
  Sender: FDA-Public Use
  Company Number: US-AMGEN-USASP2011009720

PATIENT
  Age: 69 Year
  Sex: Male

DRUGS (3)
  1. NPLATE [Suspect]
     Indication: THROMBOCYTOPENIA
     Dosage: 2 A?G, UNK
     Dates: start: 20101005, end: 20101028
  2. NPLATE [Suspect]
     Indication: IDIOPATHIC THROMBOCYTOPENIC PURPURA
  3. PREDNISONE [Concomitant]
     Dosage: 20 G, BID
     Dates: start: 20100812

REACTIONS (2)
  - CARDIAC OPERATION [None]
  - CORONARY ARTERY DISEASE [None]
